FAERS Safety Report 7111536-7 (Version None)
Quarter: 2010Q4

REPORT INFORMATION
  Report Type: 
  Country: None (occurrence: None)
  Receive Date: 20101118
  Receipt Date: 20100119
  Transmission Date: 20110411
  Serious: No
  Sender: FDA-Public Use
  Company Number: US-TEVA-221313USA

PATIENT
  Age: 8 Year
  Sex: Male

DRUGS (1)
  1. ALBUTEROL SULFATE AUTOHALER [Suspect]
     Indication: ASTHMA
     Dosage: ONE TIME USE
     Route: 055
     Dates: start: 20090901, end: 20090901

REACTIONS (2)
  - LIP SWELLING [None]
  - URTICARIA [None]
